APPROVED DRUG PRODUCT: NEUROLITE
Active Ingredient: TECHNETIUM TC-99M BICISATE KIT
Strength: N/A
Dosage Form/Route: INJECTABLE;INJECTION
Application: N020256 | Product #001
Applicant: LANTHEUS MEDICAL IMAGING INC
Approved: Nov 23, 1994 | RLD: Yes | RS: Yes | Type: RX